FAERS Safety Report 4382979-X (Version None)
Quarter: 2004Q2

REPORT INFORMATION
  Report Type: 
  Country: None (occurrence: None)
  Receive Date: 20040617
  Receipt Date: 20040602
  Transmission Date: 20050107
  Serious: Yes (Other)
  Sender: FDA-Public Use
  Company Number: 2004-02478

PATIENT
  Age: 60 Year
  Sex: Female

DRUGS (1)
  1. FLUOROURACIL [Suspect]
     Indication: BREAST CANCER METASTATIC
     Dosage: 300 MG/M2, DAILY, INTRAVENOUS
     Route: 042
     Dates: start: 19980101, end: 19980101

REACTIONS (8)
  - CONFUSIONAL STATE [None]
  - DRUG TOXICITY [None]
  - FEBRILE NEUTROPENIA [None]
  - ODYNOPHAGIA [None]
  - RASH [None]
  - REFUSAL OF TREATMENT BY PATIENT [None]
  - SEPSIS [None]
  - SKIN ULCER [None]
